FAERS Safety Report 21084311 (Version 1)
Quarter: 2022Q3

REPORT INFORMATION
  Report Type: Spontaneous
  Country: US (occurrence: US)
  Receive Date: 20220714
  Receipt Date: 20220714
  Transmission Date: 20221026
  Serious: No
  Sender: FDA-Public Use
  Company Number: US-JAZZ-2022-US-015775

PATIENT
  Sex: Male

DRUGS (7)
  1. EPIDIOLEX [Suspect]
     Active Substance: CANNABIDIOL
     Indication: Lennox-Gastaut syndrome
     Dosage: 1.1 MILLILITER, BID
     Route: 048
  2. MIRALAX [Concomitant]
     Active Substance: POLYETHYLENE GLYCOL 3350
  3. VIGABATRIN [Concomitant]
     Active Substance: VIGABATRIN
  4. ONFI [Concomitant]
     Active Substance: CLOBAZAM
  5. EPIPEN [Concomitant]
     Active Substance: EPINEPHRINE
  6. DIAZEPAM [Concomitant]
     Active Substance: DIAZEPAM
  7. ZONISAMIDE [Concomitant]
     Active Substance: ZONISAMIDE

REACTIONS (1)
  - Product administration interrupted [Unknown]
